FAERS Safety Report 7220355-2 (Version None)
Quarter: 2011Q1

REPORT INFORMATION
  Report Type: 
  Country: None (occurrence: None)
  Receive Date: 20110111
  Receipt Date: 20110106
  Transmission Date: 20110831
  Serious: Yes (Other)
  Sender: FDA-Public Use
  Company Number: CA-ABBOTT-10P-028-0622094-00

PATIENT
  Sex: Male
  Weight: 72.64 kg

DRUGS (4)
  1. LUPRON DEPOT [Suspect]
     Indication: PROSTATE CANCER
     Dates: start: 20051220
  2. VITAMINS AND MINERALS [Concomitant]
     Indication: PRODUCT USED FOR UNKNOWN INDICATION
  3. HYDROCORTISONE [Concomitant]
     Indication: PRODUCT USED FOR UNKNOWN INDICATION
  4. WARFARIN SODIUM [Concomitant]
     Indication: PRODUCT USED FOR UNKNOWN INDICATION

REACTIONS (4)
  - GENERAL PHYSICAL HEALTH DETERIORATION [None]
  - PROSTATE CANCER METASTATIC [None]
  - MUSCULOSKELETAL CHEST PAIN [None]
  - BONE SCAN ABNORMAL [None]
